FAERS Safety Report 19291397 (Version 1)
Quarter: 2021Q2

REPORT INFORMATION
  Report Type: Spontaneous
  Country: None (occurrence: GB)
  Receive Date: 20210523
  Receipt Date: 20210523
  Transmission Date: 20210717
  Serious: Yes (Other)
  Sender: FDA-Public Use
  Company Number: GB-B.BRAUN MEDICAL INC.-2111843

PATIENT
  Age: 20 Year
  Sex: Male
  Weight: 56.24 kg

DRUGS (2)
  1. METRONIDAZOLE INJECTION USP (5 MG/ML) IN PAB? PLASTIC CONTAINER (NDA 0 [Suspect]
     Active Substance: METRONIDAZOLE
     Indication: ILL-DEFINED DISORDER
     Route: 042
     Dates: start: 20200513, end: 20200517
  2. BISOPROLOL FUMARATE. [Concomitant]
     Active Substance: BISOPROLOL FUMARATE

REACTIONS (12)
  - Postural orthostatic tachycardia syndrome [Not Recovered/Not Resolved]
  - Constipation [Not Recovered/Not Resolved]
  - Tachycardia [Not Recovered/Not Resolved]
  - Blindness [Not Recovered/Not Resolved]
  - Nausea [Not Recovered/Not Resolved]
  - Tremor [Not Recovered/Not Resolved]
  - Vertigo [Not Recovered/Not Resolved]
  - Dissociative identity disorder [Not Recovered/Not Resolved]
  - Diplegia [Not Recovered/Not Resolved]
  - Anxiety [Not Recovered/Not Resolved]
  - Electrolyte imbalance [Not Recovered/Not Resolved]
  - Dizziness [Not Recovered/Not Resolved]

NARRATIVE: CASE EVENT DATE: 20200513
